FAERS Safety Report 22146749 (Version 2)
Quarter: 2023Q2

REPORT INFORMATION
  Report Type: Spontaneous
  Country: JP (occurrence: JP)
  Receive Date: 20230328
  Receipt Date: 20230504
  Transmission Date: 20230722
  Serious: Yes (Other)
  Sender: FDA-Public Use
  Company Number: JP-PFIZER INC-202300129890

PATIENT
  Age: 62 Year
  Sex: Female
  Weight: 37 kg

DRUGS (6)
  1. AZITHROMYCIN DIHYDRATE [Suspect]
     Active Substance: AZITHROMYCIN DIHYDRATE
     Indication: Tuberculosis
     Dosage: 250 MG DIVIDED INTO 1
     Route: 048
     Dates: start: 20221206
  2. AZITHROMYCIN DIHYDRATE [Suspect]
     Active Substance: AZITHROMYCIN DIHYDRATE
     Indication: Lower respiratory tract infection bacterial
  3. EBUTOL [Suspect]
     Active Substance: ETHAMBUTOL HYDROCHLORIDE
     Indication: Atypical mycobacterial lower respiratory tract infection
     Dosage: 250 MG DIVIDED INTO 1
     Route: 048
     Dates: start: 20221206
  4. EBUTOL [Suspect]
     Active Substance: ETHAMBUTOL HYDROCHLORIDE
     Indication: Atypical mycobacterial lower respiratory tract infection
     Dosage: 150 MG DIVIDED INTO 1
     Route: 048
     Dates: start: 20221206
  5. RIFAMPIN [Concomitant]
     Active Substance: RIFAMPIN
  6. LEVOTHYROXINE SODIUM [Concomitant]
     Active Substance: LEVOTHYROXINE SODIUM

REACTIONS (9)
  - White blood cell count decreased [Recovering/Resolving]
  - Granulocyte count decreased [Unknown]
  - Platelet count decreased [Unknown]
  - Myalgia [Unknown]
  - Malaise [Unknown]
  - Renal impairment [Recovered/Resolved]
  - Visual acuity reduced [Recovered/Resolved]
  - Drug ineffective for unapproved indication [Unknown]
  - Off label use [Unknown]

NARRATIVE: CASE EVENT DATE: 20230118
